FAERS Safety Report 19363548 (Version 1)
Quarter: 2021Q2

REPORT INFORMATION
  Report Type: Report from Study
  Country: None (occurrence: AT)
  Receive Date: 20210603
  Receipt Date: 20210603
  Transmission Date: 20210717
  Serious: Yes (Death)
  Sender: FDA-Public Use
  Company Number: AT-ABBVIE-21K-009-3932000-00

PATIENT
  Sex: Male

DRUGS (2)
  1. DUODOPA [Suspect]
     Active Substance: CARBIDOPA\LEVODOPA
  2. DUODOPA [Suspect]
     Active Substance: CARBIDOPA\LEVODOPA
     Indication: PARKINSON^S DISEASE
     Dosage: MD 7,5 ML; CRDAYTIME  3,3 ML; ED 2 ML; APPLICATION FREQUENCY: 16H THERAPY
     Route: 050
     Dates: start: 20110509

REACTIONS (1)
  - Death [Fatal]

NARRATIVE: CASE EVENT DATE: 20210602
